FAERS Safety Report 5551695-0 (Version None)
Quarter: 2007Q4

REPORT INFORMATION
  Report Type: 
  Country: None (occurrence: None)
  Receive Date: 20071212
  Receipt Date: 20071130
  Transmission Date: 20080405
  Serious: Yes (Hospitalization)
  Sender: FDA-Public Use
  Company Number: CH-PFIZER INC-2007093889

PATIENT
  Sex: Female
  Weight: 49 kg

DRUGS (8)
  1. FARMORUBICIN RD [Suspect]
     Indication: BREAST CANCER IN SITU
     Route: 042
     Dates: start: 20060807, end: 20061213
  2. CYCLOPHOSPHAMIDE [Suspect]
     Indication: BREAST CANCER IN SITU
     Route: 042
     Dates: start: 20060807, end: 20061213
  3. FLUOROURACIL [Suspect]
     Indication: BREAST CANCER IN SITU
     Route: 042
     Dates: start: 20060807, end: 20061213
  4. ZOFRAN [Concomitant]
  5. SOLU-MEDROL [Concomitant]
  6. PRIMPERAN INJ [Concomitant]
  7. FOLIC ACID [Concomitant]
  8. GYNO-TARDYFERON [Concomitant]

REACTIONS (1)
  - TUBERCULOSIS [None]
